FAERS Safety Report 4326167-1 (Version None)
Quarter: 2004Q1

REPORT INFORMATION
  Report Type: 
  Country: None (occurrence: None)
  Receive Date: 20040324
  Receipt Date: 20040317
  Transmission Date: 20041129
  Serious: Yes (Hospitalization)
  Sender: FDA-Public Use
  Company Number: 2004IC000048

PATIENT
  Age: 64 Year
  Sex: Female

DRUGS (9)
  1. LIBRAX (CHLORDIAZEPOXIDE HYDROCHLORIDE/ CLIDINIM BROMIDE) [Suspect]
     Dates: end: 20040126
  2. GEMZAR [Suspect]
     Dosage: 1600 MG; INTRAVENOUS
     Route: 042
     Dates: end: 20031125
  3. LORAZEPAM [Concomitant]
  4. ATHYMIL [Concomitant]
  5. PREDNISONE [Concomitant]
  6. DURAGESIC [Concomitant]
  7. MOPRAL [Concomitant]
  8. ARIMIDEX [Concomitant]
  9. DAFALGAN [Concomitant]

REACTIONS (2)
  - PULMONARY FIBROSIS [None]
  - PULMONARY RADIATION INJURY [None]
